FAERS Safety Report 4694716-X (Version None)
Quarter: 2005Q2

REPORT INFORMATION
  Report Type: 
  Country: None (occurrence: None)
  Receive Date: 20050617
  Receipt Date: 20050610
  Transmission Date: 20051028
  Serious: Yes (Hospitalization, Other)
  Sender: FDA-Public Use
  Company Number: 200511445BCC

PATIENT
  Sex: Female

DRUGS (2)
  1. ALEVE [Suspect]
     Indication: ARTHRALGIA
     Dosage: 440 MG BID ORAL
     Route: 048
  2. PAIN PILLS (NOS) (ANALGESICS) [Suspect]
     Dosage: 800 MG TID

REACTIONS (9)
  - ASTHENIA [None]
  - DEPRESSION [None]
  - FATIGUE [None]
  - HAEMORRHAGE [None]
  - MUSCLE SPASMS [None]
  - PULMONARY OEDEMA [None]
  - STOMACH DISCOMFORT [None]
  - SUICIDE ATTEMPT [None]
  - SYNCOPE [None]
